FAERS Safety Report 20882932 (Version 2)
Quarter: 2023Q1

REPORT INFORMATION
  Report Type: Other
  Country: US (occurrence: None)
  Receive Date: 20220527
  Receipt Date: 20230130
  Transmission Date: 20230418
  Serious: No
  Sender: FDA-Public Use
  Company Number: US-ROCHE-3105894

PATIENT
  Age: 35 Year
  Sex: Female

DRUGS (1)
  1. OCREVUS [Suspect]
     Active Substance: OCRELIZUMAB
     Indication: Primary progressive multiple sclerosis
     Dosage: 300 MG IVPB ON DAY 1 AND DAY 15 AND 600 MG IVPB EVERY 6 MONTHS
     Route: 042
     Dates: start: 20210615

REACTIONS (4)
  - COVID-19 [Recovered/Resolved]
  - Cough [Not Recovered/Not Resolved]
  - Influenza [Unknown]
  - Bronchitis [Unknown]

NARRATIVE: CASE EVENT DATE: 20220526
